FAERS Safety Report 24272002 (Version 1)
Quarter: 2024Q3

REPORT INFORMATION
  Report Type: Spontaneous
  Country: DE (occurrence: DE)
  Receive Date: 20240902
  Receipt Date: 20240902
  Transmission Date: 20241017
  Serious: Yes (Life-Threatening)
  Sender: SANDOZ
  Company Number: DE-CELLTRION HEALTHCARE HUNGARY KFT-2020DE030877

PATIENT

DRUGS (14)
  1. ACYCLOVIR [Suspect]
     Active Substance: ACYCLOVIR
     Indication: Product used for unknown indication
     Dosage: RECEIVED AT EACH CYCLE
     Route: 065
  2. CYTARABINE [Suspect]
     Active Substance: CYTARABINE
     Indication: Product use in unapproved indication
     Dosage: 10 MG, DAY 5, CYCLE 5 (1 CYCLE = 2 WEEKS)
     Route: 065
  3. CYTARABINE [Suspect]
     Active Substance: CYTARABINE
     Dosage: 10 MG, DAY 6, CYCLE 4+6 (1 CYCLE = 3 WEEKS)
     Route: 065
  4. CYTARABINE [Suspect]
     Active Substance: CYTARABINE
     Dosage: 3000 MG/M2, DAY 1-2, CYCLE 4+6 (1 CYCLE = 3 WEEKS)
     Route: 042
  5. GRANULOCYTE COLONY-STIMULATING FACTOR NOS [Suspect]
     Active Substance: GRANULOCYTE COLONY-STIMULATING FACTOR NOS
     Indication: Prophylaxis
     Dosage: RECEIVED AT EACH CYCLE
     Route: 065
  6. IFOSFAMIDE [Suspect]
     Active Substance: IFOSFAMIDE
     Indication: Central nervous system lymphoma
     Dosage: 800 MG/M2, DAY 2-4, CYCLE 1-3 (1 CYCLE = 2 WEEKS)
     Route: 042
  7. IFOSFAMIDE [Suspect]
     Active Substance: IFOSFAMIDE
     Dosage: UNK800 MG/M2, DAY 2-4, CYCLE 5 (1 CYCLE = 2 WEEKS)
     Route: 042
  8. METHOTREXATE [Suspect]
     Active Substance: METHOTREXATE
     Dosage: UNK2.5 MG, DAY 2-4, CYCLE 5 (1 CYCLE = 2 WEEKS)
     Route: 065
  9. METHOTREXATE [Suspect]
     Active Substance: METHOTREXATE
     Dosage: UNK2.5 MG, DAY 2-4, CYCLE 5 (1 CYCLE = 2 WEEKS)
     Route: 065
  10. METHOTREXATE [Suspect]
     Active Substance: METHOTREXATE
     Indication: Central nervous system lymphoma
     Dosage: 4000 MG/M2, DAY 1, CYCLE 5 (1 CYCLE = 2 WEEKS)
     Route: 042
  11. PREDNISOLONE [Suspect]
     Active Substance: PREDNISOLONE
     Indication: Central nervous system lymphoma
     Dosage: 3 MG, DAY 2-4, CYCLE 5 (1 CYCLE = 2 WEEKS), ICV/INTRACEREBROVENTRICULAR ROUTE
     Route: 065
  12. PREDNISOLONE [Suspect]
     Active Substance: PREDNISOLONE
     Dosage: 3 MG, DAY 3-5, CYCLE 4+6 (1 CYCLE = 3 WEEKS), ICV/INTRACEREBROVENTRICULAR ROUTE
     Route: 065
  13. RITUXIMAB [Suspect]
     Active Substance: RITUXIMAB
     Indication: Central nervous system lymphoma
     Dosage: 375 MG/M2, DAY 0, CYCLE 1-3 (1 CYCLE = 2 WEEKS)
     Route: 042
  14. SULFAMETHOXAZOLE\TRIMETHOPRIM [Suspect]
     Active Substance: SULFAMETHOXAZOLE\TRIMETHOPRIM
     Indication: Product used for unknown indication
     Dosage: RECEIVED AT EACH CYCLE
     Route: 065

REACTIONS (1)
  - Thrombosis [Unknown]
